FAERS Safety Report 6290939-7 (Version None)
Quarter: 2009Q3

REPORT INFORMATION
  Report Type: 
  Country: None (occurrence: None)
  Receive Date: 20090730
  Receipt Date: 20090721
  Transmission Date: 20100115
  Serious: Yes (Other)
  Sender: FDA-Public Use
  Company Number: FR-PFIZER INC-2009246483

PATIENT
  Age: 61 Year

DRUGS (6)
  1. ATARAX [Suspect]
     Dosage: 1 DF, ONCE
     Route: 048
     Dates: start: 20090618, end: 20090618
  2. GLUCOPHAGE [Suspect]
     Dosage: 1 DF, ONCE
     Route: 048
     Dates: start: 20090618, end: 20090618
  3. ATHYMIL [Suspect]
     Dosage: UNK
     Route: 048
     Dates: start: 20090618, end: 20090618
  4. DAFLON [Suspect]
     Dosage: UNK
     Route: 048
     Dates: start: 20090618, end: 20090618
  5. GLUCOR [Suspect]
     Dosage: 1 UNK, UNK
     Route: 048
     Dates: start: 20090618, end: 20090618
  6. RISPERDAL [Suspect]
     Dosage: 4 MG, SINGLE
     Route: 048
     Dates: start: 20090618, end: 20090618

REACTIONS (3)
  - DRUG DISPENSING ERROR [None]
  - HYPOTENSION [None]
  - SOMNOLENCE [None]
